FAERS Safety Report 7901264-X (Version None)
Quarter: 2011Q4

REPORT INFORMATION
  Report Type: 
  Country: None (occurrence: None)
  Receive Date: 20111108
  Receipt Date: 20111102
  Transmission Date: 20120403
  Serious: Yes (Death)
  Sender: FDA-Public Use
  Company Number: PHHY2011DE96846

PATIENT
  Age: 72 Year
  Sex: Male
  Weight: 98 kg

DRUGS (5)
  1. BERODUAL [Concomitant]
     Indication: ASTHMA
  2. ASPIRIN [Concomitant]
     Indication: HYPERLIPIDAEMIA
     Dosage: 100 MG, UNK
     Route: 048
  3. SIMVASTATIN [Concomitant]
     Indication: HYPERLIPIDAEMIA
     Dosage: 20 MG, UNK
     Route: 048
  4. TAMSULOSIN HCL [Concomitant]
     Indication: BENIGN PROSTATIC HYPERPLASIA
     Dosage: 0.4 MG, UNK
     Route: 048
  5. EXELON [Suspect]
     Indication: DEMENTIA
     Dosage: 9.5 MG, PER 24 HOURS
     Route: 062

REACTIONS (1)
  - DEATH [None]
